FAERS Safety Report 9709919 (Version 2)
Quarter: 2013Q4

REPORT INFORMATION
  Report Type: Spontaneous
  Country: US (occurrence: US)
  Receive Date: 20131126
  Receipt Date: 20131219
  Transmission Date: 20140711
  Serious: No
  Sender: FDA-Public Use
  Company Number: US-PFIZER INC-2013334678

PATIENT
  Age: 66 Year
  Sex: Female

DRUGS (6)
  1. CELECOXIB [Suspect]
     Dosage: UNK
  2. DETROL [Suspect]
     Dosage: UNK
  3. METAXALONE [Suspect]
     Dosage: UNK
  4. NAPROXEN SODIUM [Suspect]
     Dosage: UNK
  5. TOLTERODINE TARTRATE [Suspect]
     Dosage: UNK
  6. TRAVATAN [Suspect]
     Dosage: UNK

REACTIONS (1)
  - Drug hypersensitivity [Unknown]
